FAERS Safety Report 9810668 (Version 5)
Quarter: 2014Q2

REPORT INFORMATION
  Report Type: Spontaneous
  Country: US (occurrence: US)
  Receive Date: 20140110
  Receipt Date: 20140612
  Transmission Date: 20141212
  Serious: Yes (Hospitalization)
  Sender: FDA-Public Use
  Company Number: US-SA-2013SA097177

PATIENT
  Age: 78 Year
  Sex: Male
  Weight: 89 kg

DRUGS (8)
  1. PLAVIX [Suspect]
     Indication: STENT PLACEMENT
     Route: 065
  2. PLAVIX [Suspect]
     Indication: STENT PLACEMENT
     Route: 048
     Dates: start: 20110630
  3. ASPIRIN [Concomitant]
     Indication: CARDIAC DISORDER
     Dates: start: 1980
  4. ALL OTHER THERAPEUTIC PRODUCTS [Concomitant]
  5. ALLOPURINOL [Concomitant]
     Indication: GOUT
     Dates: start: 2008
  6. LEVOTHYROXINE [Concomitant]
     Indication: THYROID DISORDER
     Dates: start: 2002
  7. FISH OIL [Concomitant]
     Dosage: DOSE:1000 NOT APPLICABLE
  8. AMLODIPINE BESILATE [Concomitant]
     Indication: BLOOD PRESSURE

REACTIONS (8)
  - Convulsion [Unknown]
  - Loss of consciousness [Unknown]
  - Intestinal haemorrhage [Recovered/Resolved]
  - Haematochezia [Recovered/Resolved]
  - Asthenia [Recovered/Resolved]
  - Anaemia [Unknown]
  - Skin ulcer [Unknown]
  - Dizziness [Unknown]
